FAERS Safety Report 21889997 (Version 1)
Quarter: 2023Q1

REPORT INFORMATION
  Report Type: Spontaneous
  Country: DE (occurrence: DE)
  Receive Date: 20230120
  Receipt Date: 20230120
  Transmission Date: 20230417
  Serious: Yes (Other)
  Sender: FDA-Public Use
  Company Number: DE-ROCHE-3256954

PATIENT
  Sex: Female

DRUGS (18)
  1. BENDAMUSTINE HYDROCHLORIDE [Suspect]
     Active Substance: BENDAMUSTINE HYDROCHLORIDE
     Indication: Diffuse large B-cell lymphoma
     Dosage: (POLATUZUMAB PLUS BENDAMUSTIN PLUS RITUXIMAB)
     Route: 042
     Dates: start: 20220509, end: 20220617
  2. OXALIPLATIN [Suspect]
     Active Substance: OXALIPLATIN
     Indication: Diffuse large B-cell lymphoma
     Dosage: (R-DHAOX)
     Route: 065
     Dates: start: 20220303, end: 20220414
  3. LENALIDOMIDE [Suspect]
     Active Substance: LENALIDOMIDE
     Indication: Diffuse large B-cell lymphoma
     Dosage: (TAFASITAMAB WITH LENALIDOMIDE)
     Route: 065
     Dates: start: 20221129, end: 20221219
  4. GEMCITABINE [Suspect]
     Active Substance: GEMCITABINE
     Indication: Diffuse large B-cell lymphoma
     Dosage: (R-GEMOX) GEMOX
     Route: 065
     Dates: start: 20221001, end: 20221101
  5. DOXORUBICIN HYDROCHLORIDE [Suspect]
     Active Substance: DOXORUBICIN HYDROCHLORIDE
     Indication: Diffuse large B-cell lymphoma
     Dosage: (R-CHOP)
     Route: 065
     Dates: start: 20210601, end: 20211001
  6. PREDNISONE [Suspect]
     Active Substance: PREDNISONE
     Indication: Diffuse large B-cell lymphoma
     Dosage: (R-CHOP)
     Route: 065
     Dates: start: 20210601, end: 20211001
  7. DEXAMETHASONE [Suspect]
     Active Substance: DEXAMETHASONE
     Indication: Diffuse large B-cell lymphoma
     Dosage: (R-DHAOX)
     Route: 065
     Dates: start: 20220303, end: 20220414
  8. VINCRISTINE SULFATE [Suspect]
     Active Substance: VINCRISTINE SULFATE
     Indication: Diffuse large B-cell lymphoma
     Dosage: (R-CHOP)
     Route: 065
     Dates: start: 20210601, end: 20211001
  9. OXALIPLATIN [Suspect]
     Active Substance: OXALIPLATIN
     Indication: Diffuse large B-cell lymphoma
     Dosage: (R-GEMOX) GEMOX
     Route: 065
     Dates: start: 20221001, end: 20221101
  10. CYCLOPHOSPHAMIDE [Suspect]
     Active Substance: CYCLOPHOSPHAMIDE
     Indication: Diffuse large B-cell lymphoma
     Dosage: (R-CHOP)
     Route: 065
     Dates: start: 20210601, end: 20211001
  11. POLATUZUMAB VEDOTIN [Suspect]
     Active Substance: POLATUZUMAB VEDOTIN
     Indication: Diffuse large B-cell lymphoma
     Dosage: (POLATUZUMAB PLUS BENDAMUSTIN PLUS RITUXIMAB)
     Route: 065
     Dates: start: 20220509, end: 20220617
  12. GENETICALLY-MODIFIED AUTOLOGOUS T CELLS NOS [Suspect]
     Active Substance: GENETICALLY-MODIFIED AUTOLOGOUS T CELLS NOS
     Indication: Diffuse large B-cell lymphoma
     Route: 065
     Dates: start: 20220622, end: 20220628
  13. RITUXIMAB [Suspect]
     Active Substance: RITUXIMAB
     Indication: Diffuse large B-cell lymphoma
     Dosage: (R-DHAOX)
     Route: 065
     Dates: start: 20220303, end: 20220414
  14. RITUXIMAB [Suspect]
     Active Substance: RITUXIMAB
     Dosage: (R-GEMOX)
     Route: 065
     Dates: start: 20221001, end: 20221101
  15. RITUXIMAB [Suspect]
     Active Substance: RITUXIMAB
     Dosage: (POLATUZUMAB PLUS BENDAMUSTIN PLUS RITUXIMAB)
     Route: 065
     Dates: start: 20220509, end: 20220617
  16. RITUXIMAB [Suspect]
     Active Substance: RITUXIMAB
     Dosage: (R-CHOP)
     Route: 065
     Dates: start: 20210601, end: 20211001
  17. CYTARABINE [Suspect]
     Active Substance: CYTARABINE
     Indication: Diffuse large B-cell lymphoma
     Dosage: (R-DHAOX)
     Route: 065
     Dates: start: 20220303, end: 20220414
  18. TAFASITAMAB-CXIX [Suspect]
     Active Substance: TAFASITAMAB-CXIX
     Indication: Diffuse large B-cell lymphoma
     Dosage: (TAFASITAMAB WITH LENALIDOMIDE)
     Route: 065
     Dates: start: 20221129, end: 20221219

REACTIONS (2)
  - Malignant neoplasm progression [Not Recovered/Not Resolved]
  - Off label use [Unknown]

NARRATIVE: CASE EVENT DATE: 20220509
